FAERS Safety Report 22226173 (Version 4)
Quarter: 2023Q2

REPORT INFORMATION
  Report Type: Report from Study
  Country: IT (occurrence: IT)
  Receive Date: 20230419
  Receipt Date: 20230607
  Transmission Date: 20230722
  Serious: Yes (Other)
  Sender: FDA-Public Use
  Company Number: IT-BRISTOL-MYERS SQUIBB COMPANY-2022-141049

PATIENT
  Age: 76 Year
  Sex: Male
  Weight: 68 kg

DRUGS (3)
  1. ABRAXANE [Suspect]
     Active Substance: PACLITAXEL
     Indication: Pancreatic carcinoma
     Dosage: DAY 1, 8, 15
     Route: 042
     Dates: start: 20220713, end: 20221108
  2. GEMCITABINE [Suspect]
     Active Substance: GEMCITABINE
     Indication: Pancreatic carcinoma
     Dosage: DAY 1-8-15
     Route: 042
     Dates: start: 20220609, end: 20221108
  3. METOCLOPRAMIDE CLORID [Concomitant]
     Indication: Prophylaxis
     Dosage: GG 1-8-15
     Dates: start: 20220609, end: 20221102

REACTIONS (7)
  - Anaemia [Recovered/Resolved with Sequelae]
  - Leukopenia [Recovered/Resolved]
  - Thrombocytopenia [Recovered/Resolved]
  - Diarrhoea [Recovered/Resolved with Sequelae]
  - Neurotoxicity [Recovered/Resolved]
  - Neutropenia [Recovered/Resolved]
  - Palmar-plantar erythrodysaesthesia syndrome [Recovered/Resolved]

NARRATIVE: CASE EVENT DATE: 20220719
